FAERS Safety Report 7590348-4 (Version None)
Quarter: 2011Q3

REPORT INFORMATION
  Report Type: 
  Country: None (occurrence: None)
  Receive Date: 20110705
  Receipt Date: 20110623
  Transmission Date: 20111222
  Serious: Yes (Disabling, Other)
  Sender: FDA-Public Use
  Company Number: US-ELI_LILLY_AND_COMPANY-US200611000220

PATIENT
  Age: 64 Year
  Sex: Male

DRUGS (5)
  1. LEVITRA                                 /GFR/ [Concomitant]
     Indication: ERECTILE DYSFUNCTION
     Dosage: UNK, UNK
     Route: 048
     Dates: start: 20041001
  2. TAMSULOSIN HYDROCHLORIDE [Concomitant]
  3. ACETYLSALICYLIC ACID SRT [Concomitant]
     Dosage: 81 MG, UNK
  4. VIAGRA                                  /SWE/ [Concomitant]
     Dates: start: 20041001
  5. CIALIS [Suspect]
     Indication: ERECTILE DYSFUNCTION

REACTIONS (1)
  - DEAFNESS NEUROSENSORY [None]
